FAERS Safety Report 7819936-4 (Version None)
Quarter: 2011Q4

REPORT INFORMATION
  Report Type: 
  Country: None (occurrence: None)
  Receive Date: 20111018
  Receipt Date: 20101022
  Transmission Date: 20120403
  Serious: No
  Sender: FDA-Public Use
  Company Number: US-ASTRAZENECA-2010SE50312

PATIENT
  Age: 86 Year
  Sex: Female
  Weight: 74.8 kg

DRUGS (6)
  1. SYMBICORT [Suspect]
     Dosage: 160/4.5 MCG, 1 PUFF, TWO TIMES A DAY.
     Route: 055
     Dates: start: 20100801, end: 20101001
  2. SYMBICORT [Suspect]
     Dosage: 80/4.5 MCG, 2 PUFF, TWO TIMES A DAY.
     Route: 055
     Dates: start: 20101012, end: 20101021
  3. ANTIHYPERTENSIVES [Concomitant]
     Indication: BLOOD PRESSURE
  4. SYMBICORT [Suspect]
     Indication: EMPHYSEMA
     Dosage: 160/4.5 MCG, 2 PUFF, TWO TIMES A DAY.
     Route: 055
  5. SYMBICORT [Suspect]
     Dosage: 160/4.5 MCG, 2 PUFF, TWO TIMES A DAY.
     Route: 055
     Dates: start: 20101001
  6. ALBUTEROL [Concomitant]

REACTIONS (3)
  - DRUG INEFFECTIVE [None]
  - INCORRECT DOSE ADMINISTERED [None]
  - DYSPNOEA [None]
